FAERS Safety Report 18844669 (Version 2)
Quarter: 2021Q1

REPORT INFORMATION
  Report Type: Spontaneous
  Country: JP (occurrence: JP)
  Receive Date: 20210204
  Receipt Date: 20210216
  Transmission Date: 20210419
  Serious: Yes (Other)
  Sender: FDA-Public Use
  Company Number: JP-GLAXOSMITHKLINE-JP2021021974

PATIENT
  Age: 71 Year
  Sex: Male

DRUGS (2)
  1. RELVAR ELLIPTA [Suspect]
     Active Substance: FLUTICASONE FUROATE\VILANTEROL TRIFENATATE
     Indication: CHRONIC OBSTRUCTIVE PULMONARY DISEASE
     Dosage: 100 ?G, QD
     Route: 055
  2. SPIRIVA [Concomitant]
     Active Substance: TIOTROPIUM BROMIDE MONOHYDRATE
     Dosage: UNK

REACTIONS (5)
  - Sensation of foreign body [Recovering/Resolving]
  - Post-traumatic pain [Recovering/Resolving]
  - Laryngeal injury [Recovering/Resolving]
  - Laryngeal haemorrhage [Recovering/Resolving]
  - Foreign body ingestion [Unknown]

NARRATIVE: CASE EVENT DATE: 20210129
